FAERS Safety Report 26087203 (Version 1)
Quarter: 2025Q4

REPORT INFORMATION
  Report Type: Report from Study
  Country: US (occurrence: None)
  Receive Date: 20251125
  Receipt Date: 20251125
  Transmission Date: 20260118
  Serious: Yes (Other)
  Sender: UCB
  Company Number: US-UCBSA-2025073506

PATIENT
  Age: 56 Year

DRUGS (5)
  1. BRIVARACETAM [Suspect]
     Active Substance: BRIVARACETAM
     Indication: Seizure
     Dosage: WEEK 1: 25 MG QHS
  2. BRIVARACETAM [Suspect]
     Active Substance: BRIVARACETAM
     Dosage: WEEK 2: 25 MILLIGRAM, 2X/DAY (BID)
  3. BRIVARACETAM [Suspect]
     Active Substance: BRIVARACETAM
     Dosage: WEEK 3: 25 MG QAM/50 MG QHS
  4. BRIVARACETAM [Suspect]
     Active Substance: BRIVARACETAM
     Dosage: 50 MILLIGRAM, 2X/DAY (BID)
  5. VIMPAT [Suspect]
     Active Substance: LACOSAMIDE
     Indication: Seizure
     Dosage: 200 MILLIGRAM, 2X/DAY (BID)

REACTIONS (3)
  - Seizure [Recovered/Resolved]
  - Inappropriate schedule of product administration [Unknown]
  - Product use issue [Unknown]
